FAERS Safety Report 7699328-1 (Version None)
Quarter: 2011Q3

REPORT INFORMATION
  Report Type: 
  Country: None (occurrence: None)
  Receive Date: 20110819
  Receipt Date: 20110808
  Transmission Date: 20111222
  Serious: Yes (Other)
  Sender: FDA-Public Use
  Company Number: US-BAYER-2011-042730

PATIENT
  Age: 29 Year
  Sex: Female
  Weight: 104 kg

DRUGS (7)
  1. BUSPAR [Concomitant]
     Dosage: 10 MG, UNK
  2. WELLBUTRIN [Concomitant]
     Dosage: 150 MG, UNK
  3. XANAX [Concomitant]
     Dosage: 0.5 MG, UNK
  4. DROSPIRENONE AND ETHINYL ESTRADIOL [Suspect]
     Indication: CONTRACEPTION
     Dosage: UNK
     Dates: start: 20090301, end: 20090801
  5. EFFEXOR [Concomitant]
     Dosage: 7 MG, UNK
  6. PAXIL CR [Concomitant]
  7. YASMIN [Suspect]
     Indication: CONTRACEPTION
     Dosage: UNK
     Dates: start: 20050901, end: 20080701

REACTIONS (4)
  - DEEP VEIN THROMBOSIS [None]
  - EMOTIONAL DISTRESS [None]
  - PULMONARY EMBOLISM [None]
  - PAIN [None]
